FAERS Safety Report 8504594-6 (Version None)
Quarter: 2012Q3

REPORT INFORMATION
  Report Type: 
  Country: None (occurrence: None)
  Receive Date: 20120711
  Receipt Date: 20120703
  Transmission Date: 20120928
  Serious: No
  Sender: FDA-Public Use
  Company Number: US-009507513-1207USA000414

PATIENT

DRUGS (3)
  1. ADVAIR DISKUS 100/50 [Concomitant]
  2. PREDNISONE [Concomitant]
  3. PROVENTIL [Suspect]
     Indication: ASTHMA
     Dosage: UNK
     Route: 048
     Dates: start: 19920101

REACTIONS (1)
  - DRUG INEFFECTIVE [None]
